FAERS Safety Report 8969145 (Version 1)
Quarter: 2012Q4

REPORT INFORMATION
  Report Type: Spontaneous
  Country: US (occurrence: None)
  Receive Date: 20121214
  Receipt Date: 20121214
  Transmission Date: 20130627
  Serious: Yes (Other)
  Sender: FDA-Public Use
  Company Number: None

PATIENT
  Age: 67 Year
  Sex: Male
  Weight: 83.92 kg

DRUGS (2)
  1. METFORMIN [Suspect]
     Indication: TYPE 2 DIABETES MELLITUS
     Dosage: 1,000 mg 2/day  po
     Route: 048
     Dates: start: 20100101, end: 20121211
  2. METFORMIN [Suspect]
     Indication: TYPE 2 DIABETES MELLITUS
     Dosage: 500 mg  1/day  po
     Route: 048
     Dates: start: 20100101, end: 20121211

REACTIONS (2)
  - Drug ineffective [None]
  - Product substitution issue [None]
